FAERS Safety Report 9818994 (Version 2)
Quarter: 2014Q1

REPORT INFORMATION
  Report Type: Other
  Country: SE (occurrence: SE)
  Receive Date: 20140115
  Receipt Date: 20140317
  Transmission Date: 20141002
  Serious: Yes (Hospitalization, Other)
  Sender: FDA-Public Use
  Company Number: SE-TAKEDA-2014TEU000255

PATIENT
  Age: 69 Year
  Sex: Male

DRUGS (1)
  1. ACTOS [Suspect]
     Indication: DIABETES MELLITUS
     Dosage: 15 MG, QD
     Route: 065
     Dates: start: 2010

REACTIONS (1)
  - Bladder cancer [Recovered/Resolved]
